FAERS Safety Report 4734926-6 (Version None)
Quarter: 2005Q3

REPORT INFORMATION
  Report Type: 
  Country: None (occurrence: None)
  Receive Date: 20050804
  Receipt Date: 20050406
  Transmission Date: 20060218
  Serious: Yes (Death)
  Sender: FDA-Public Use
  Company Number: 200511227FR

PATIENT
  Age: 76 Year
  Sex: Male

DRUGS (10)
  1. KETEK [Suspect]
     Indication: SUPERINFECTION LUNG
     Route: 048
     Dates: start: 20050301, end: 20050309
  2. DIGOXIN [Suspect]
     Route: 048
     Dates: end: 20050307
  3. DIFFU K [Suspect]
     Route: 048
     Dates: start: 20050115, end: 20050307
  4. BUMETANIDE [Concomitant]
     Route: 048
     Dates: end: 20050307
  5. APROVEL [Concomitant]
     Dates: start: 20050120, end: 20050307
  6. ZOCOR [Concomitant]
     Dates: start: 20040902, end: 20050309
  7. DAONIL [Concomitant]
     Dates: end: 20050307
  8. GLUCOPHAGE [Concomitant]
     Dates: end: 20050307
  9. PREVISCAN [Concomitant]
     Dates: end: 20050307
  10. ZOFENIL [Concomitant]
     Dates: end: 20050307

REACTIONS (19)
  - ANOREXIA [None]
  - ATRIOVENTRICULAR BLOCK COMPLETE [None]
  - BLOOD LACTATE DEHYDROGENASE INCREASED [None]
  - BRAIN NATRIURETIC PEPTIDE INCREASED [None]
  - CARDIAC ARREST [None]
  - CARDIAC FAILURE [None]
  - CONFUSIONAL STATE [None]
  - DEHYDRATION [None]
  - DIARRHOEA [None]
  - DRUG INTERACTION [None]
  - FIBRIN D DIMER INCREASED [None]
  - HYPERKALAEMIA [None]
  - MALNUTRITION [None]
  - MYOGLOBINAEMIA [None]
  - OVERDOSE [None]
  - RENAL FAILURE ACUTE [None]
  - SPEECH DISORDER [None]
  - VENTRICULAR TACHYCARDIA [None]
  - VOMITING [None]
